FAERS Safety Report 11941069 (Version 2)
Quarter: 2016Q1

REPORT INFORMATION
  Report Type: Spontaneous
  Country: US (occurrence: US)
  Receive Date: 20160122
  Receipt Date: 20160223
  Transmission Date: 20160526
  Serious: Yes (Hospitalization, Other)
  Sender: FDA-Public Use
  Company Number: US-009507513-1601USA007365

PATIENT
  Sex: Male

DRUGS (4)
  1. KEYTRUDA [Suspect]
     Active Substance: PEMBROLIZUMAB
     Dosage: UNK
     Dates: start: 201501, end: 201501
  2. KEYTRUDA [Suspect]
     Active Substance: PEMBROLIZUMAB
     Dosage: UNK
     Dates: start: 201503, end: 201503
  3. KEYTRUDA [Suspect]
     Active Substance: PEMBROLIZUMAB
     Indication: MALIGNANT MELANOMA
     Dosage: UNK, FIRST DOSE
     Dates: start: 201407, end: 201407
  4. PREDNISONE. [Suspect]
     Active Substance: PREDNISONE
     Dosage: UNK
     Route: 048
     Dates: start: 2014

REACTIONS (30)
  - Limb discomfort [Recovered/Resolved]
  - Vertigo [Recovered/Resolved]
  - Neuropathy peripheral [Not Recovered/Not Resolved]
  - Head discomfort [Unknown]
  - Abasia [Not Recovered/Not Resolved]
  - Eye pain [Unknown]
  - Peripheral swelling [Not Recovered/Not Resolved]
  - Anaemia [Unknown]
  - Neoplasm recurrence [Recovered/Resolved]
  - Face injury [Recovered/Resolved]
  - Facial pain [Unknown]
  - Lip disorder [Recovered/Resolved]
  - Ear discomfort [Unknown]
  - Pharyngeal hypoaesthesia [Unknown]
  - Memory impairment [Unknown]
  - Headache [Unknown]
  - Peripheral swelling [Unknown]
  - Lacrimation increased [Unknown]
  - Dizziness [Recovered/Resolved]
  - Dysuria [Unknown]
  - Balance disorder [Unknown]
  - Feeling abnormal [Recovered/Resolved]
  - Freezing phenomenon [Unknown]
  - Rhinorrhoea [Unknown]
  - Hypoaesthesia [Unknown]
  - Hypoaesthesia [Unknown]
  - Fatigue [Unknown]
  - Genital hypoaesthesia [Not Recovered/Not Resolved]
  - Dysphonia [Unknown]
  - Vertigo [Unknown]

NARRATIVE: CASE EVENT DATE: 2014
